FAERS Safety Report 4631512-3 (Version None)
Quarter: 2005Q2

REPORT INFORMATION
  Report Type: 
  Country: None (occurrence: None)
  Receive Date: 20050407
  Receipt Date: 20050322
  Transmission Date: 20051028
  Serious: Yes (Hospitalization)
  Sender: FDA-Public Use
  Company Number: NO-2005-004293

PATIENT
  Age: 21 Year
  Sex: Female

DRUGS (1)
  1. YASMIN [Suspect]
     Indication: AMENORRHOEA
     Dosage: 1 TAB (S), ORAL
     Route: 048
     Dates: end: 20050119

REACTIONS (8)
  - APHTHOUS STOMATITIS [None]
  - ARTHRALGIA [None]
  - ERYTHEMA [None]
  - HEADACHE [None]
  - MUSCULOSKELETAL STIFFNESS [None]
  - PRURITUS [None]
  - PYREXIA [None]
  - URTICARIA PAPULAR [None]
